FAERS Safety Report 17327761 (Version 2)
Quarter: 2020Q1

REPORT INFORMATION
  Report Type: Spontaneous
  Country: US (occurrence: US)
  Receive Date: 20200127
  Receipt Date: 20200128
  Transmission Date: 20200409
  Serious: Yes (Hospitalization)
  Sender: FDA-Public Use
  Company Number: US-RADIUS HEALTH INC.-2019US004592

PATIENT
  Sex: Female

DRUGS (3)
  1. TYMLOS [Suspect]
     Active Substance: ABALOPARATIDE
     Indication: OSTEOPOROSIS POSTMENOPAUSAL
     Dosage: 80 MCG, QD
     Route: 058
     Dates: end: 201912
  2. TYMLOS [Suspect]
     Active Substance: ABALOPARATIDE
     Dosage: 80 MCG, QD
     Route: 058
     Dates: start: 20191212
  3. TYMLOS [Suspect]
     Active Substance: ABALOPARATIDE
     Dosage: 80 MCG, QD
     Route: 058
     Dates: start: 20191212

REACTIONS (10)
  - Panic attack [Recovered/Resolved]
  - Anxiety [Unknown]
  - Product quality issue [Unknown]
  - Nervousness [Unknown]
  - Therapeutic response unexpected [Unknown]
  - Somnolence [Unknown]
  - Wrong technique in product usage process [Not Recovered/Not Resolved]
  - Cerebrovascular accident [Unknown]
  - Product use complaint [Unknown]
  - Product dose omission [Not Recovered/Not Resolved]
